FAERS Safety Report 8137066-1 (Version None)
Quarter: 2012Q1

REPORT INFORMATION
  Report Type: 
  Country: None (occurrence: None)
  Receive Date: 20120215
  Receipt Date: 20120206
  Transmission Date: 20120608
  Serious: No
  Sender: FDA-Public Use
  Company Number: US-BIOGENIDEC-2012BI004715

PATIENT
  Sex: Male

DRUGS (3)
  1. AMPYRA [Concomitant]
  2. AVONEX [Concomitant]
     Indication: MULTIPLE SCLEROSIS
     Route: 030
     Dates: start: 20090901
  3. TYSABRI [Suspect]
     Indication: MULTIPLE SCLEROSIS
     Route: 042
     Dates: start: 20090903

REACTIONS (6)
  - PARAESTHESIA [None]
  - FATIGUE [None]
  - DYSSTASIA [None]
  - DEPRESSION [None]
  - FEELING HOT [None]
  - ANKLE DEFORMITY [None]
